FAERS Safety Report 9355512 (Version 4)
Quarter: 2013Q3

REPORT INFORMATION
  Report Type: Report from Study
  Country: US (occurrence: US)
  Receive Date: 20130619
  Receipt Date: 20130830
  Transmission Date: 20140515
  Serious: Yes (Other)
  Sender: FDA-Public Use
  Company Number: US-SANOFI-AVENTIS-2013SA055130

PATIENT
  Age: 54 Year
  Sex: Female
  Weight: 82.11 kg

DRUGS (17)
  1. AUBAGIO [Suspect]
     Indication: MULTIPLE SCLEROSIS
     Route: 048
     Dates: start: 20130526
  2. AUBAGIO [Suspect]
     Indication: MULTIPLE SCLEROSIS
     Route: 048
     Dates: start: 201306
  3. BACLOFEN [Concomitant]
  4. SYNTHROID [Concomitant]
  5. ULTRAM [Concomitant]
  6. VITAMIN D [Concomitant]
     Dosage: 1 MONTHLY
  7. PLAQUENIL [Concomitant]
  8. NEXIUM [Concomitant]
  9. TRAZODONE [Concomitant]
  10. ADDERALL [Concomitant]
  11. EVISTA [Concomitant]
  12. SULFASALAZINE [Concomitant]
  13. CELEXA [Concomitant]
  14. DEMADEX [Concomitant]
  15. VITAMIN B [Concomitant]
  16. COLACE [Concomitant]
  17. VITAMIN E [Concomitant]

REACTIONS (11)
  - Multiple sclerosis [Unknown]
  - Ear infection [Recovered/Resolved]
  - Headache [Recovered/Resolved]
  - Nasal congestion [Recovered/Resolved]
  - Abdominal distension [Unknown]
  - Nasopharyngitis [Not Recovered/Not Resolved]
  - Bronchitis [Not Recovered/Not Resolved]
  - Sinusitis [Not Recovered/Not Resolved]
  - Weight increased [Unknown]
  - Ataxia [Recovering/Resolving]
  - Headache [Recovered/Resolved]
